FAERS Safety Report 9473729 (Version 1)
Quarter: 2013Q3

REPORT INFORMATION
  Report Type: Spontaneous
  Country: US (occurrence: US)
  Receive Date: 20130823
  Receipt Date: 20130823
  Transmission Date: 20140515
  Serious: No
  Sender: FDA-Public Use
  Company Number: US-BRISTOL-MYERS SQUIBB COMPANY-16938052

PATIENT
  Age: 51 Year
  Sex: Male

DRUGS (2)
  1. SPRYCEL (CML) TABS 50 MG [Suspect]
     Indication: CHRONIC MYELOID LEUKAEMIA
     Dates: start: 20120813
  2. COQ10 [Concomitant]

REACTIONS (3)
  - Heart rate irregular [Unknown]
  - Fatigue [Unknown]
  - Hypoaesthesia oral [Unknown]
